FAERS Safety Report 14553207 (Version 1)
Quarter: 2018Q1

REPORT INFORMATION
  Report Type: Spontaneous
  Country: MX (occurrence: MX)
  Receive Date: 20180220
  Receipt Date: 20180220
  Transmission Date: 20180509
  Serious: Yes (Death, Other)
  Sender: FDA-Public Use
  Company Number: MX-ACTELION-A-CH2018-167967

PATIENT
  Age: 28 Year
  Sex: Female

DRUGS (3)
  1. COUMARIN [Concomitant]
     Active Substance: COUMARIN
  2. ZEPENDO [Suspect]
     Active Substance: MACITENTAN
     Indication: PULMONARY HYPERTENSION
     Dosage: 10 MG, OD
     Route: 048
     Dates: start: 201701, end: 201711
  3. FUROSEMIDE. [Concomitant]
     Active Substance: FUROSEMIDE
     Indication: CARDIAC FAILURE
     Dosage: 20 MG, OD
     Route: 048
     Dates: end: 201711

REACTIONS (2)
  - Hypovolaemic shock [Fatal]
  - Acute abdomen [Unknown]

NARRATIVE: CASE EVENT DATE: 201711
